FAERS Safety Report 8506766 (Version 3)
Quarter: 2014Q3

REPORT INFORMATION
  Report Type: Spontaneous
  Country: US (occurrence: US)
  Receive Date: 20120412
  Receipt Date: 20140702
  Transmission Date: 20150326
  Serious: No
  Sender: FDA-Public Use
  Company Number: US-ASTRAZENECA-2011SE29121

PATIENT
  Age: 63 Year
  Sex: Male

DRUGS (1)
  1. NEXIUM [Suspect]
     Active Substance: ESOMEPRAZOLE MAGNESIUM
     Route: 048

REACTIONS (6)
  - Abdominal pain upper [Unknown]
  - Dyspepsia [Unknown]
  - Drug dose omission [Unknown]
  - Muscle spasms [Unknown]
  - Regurgitation [Unknown]
  - Intentional product misuse [Unknown]
